FAERS Safety Report 17782686 (Version 1)
Quarter: 2020Q2

REPORT INFORMATION
  Report Type: Spontaneous
  Country: CN (occurrence: CN)
  Receive Date: 20200514
  Receipt Date: 20200514
  Transmission Date: 20200714
  Serious: Yes (Other)
  Sender: FDA-Public Use
  Company Number: CN-009507513-2005CHN003557

PATIENT
  Age: 56 Year
  Sex: Male
  Weight: 76 kg

DRUGS (3)
  1. TIENAM [Suspect]
     Active Substance: CILASTATIN SODIUM\IMIPENEM
     Indication: ANTI-INFECTIVE THERAPY
     Dosage: 2 GRAM, Q8H, IV GTT
     Route: 042
     Dates: start: 20200410, end: 20200415
  2. TIGECYCLINE. [Concomitant]
     Active Substance: TIGECYCLINE
     Indication: ANTI-INFECTIVE THERAPY
     Dosage: 100 MILLIGRAM, Q12H, IV GTT
     Route: 042
     Dates: start: 20200410, end: 20200415
  3. TIENAM [Suspect]
     Active Substance: CILASTATIN SODIUM\IMIPENEM
     Dosage: 1 GRAM, Q8H, IV GTT
     Route: 042
     Dates: start: 20200415

REACTIONS (4)
  - Dysphoria [Recovering/Resolving]
  - Blood creatinine increased [Unknown]
  - Cognitive disorder [Recovering/Resolving]
  - Psychiatric symptom [Recovering/Resolving]

NARRATIVE: CASE EVENT DATE: 20200415
